FAERS Safety Report 19633686 (Version 6)
Quarter: 2021Q3

REPORT INFORMATION
  Report Type: Other
  Country: GB (occurrence: GB)
  Receive Date: 20210730
  Receipt Date: 20210928
  Transmission Date: 20211014
  Serious: Yes (Other)
  Sender: FDA-Public Use
  Company Number: GB-ASPEN-GLO2017GB008795

PATIENT

DRUGS (77)
  1. MELPHALAN. [Suspect]
     Active Substance: MELPHALAN
     Dosage: 14 MG
     Route: 065
     Dates: start: 20171110, end: 20171114
  2. DEXAMETHASONE. [Suspect]
     Active Substance: DEXAMETHASONE
     Dosage: 20 MG, QD
     Route: 065
  3. SODIUM CHLORIDE FRESENIUS KABI [Suspect]
     Active Substance: SODIUM CHLORIDE
     Dosage: UNK (1 CYCLE), 0.9,  SOLUTION FOR INFUSION DAY 1 OF CYCLE 2, VMP REGIMEN, COMPOUNDED WITH BORTEZOMIB
     Route: 065
     Dates: start: 20171106, end: 20171106
  4. VELCADE [Suspect]
     Active Substance: BORTEZOMIB
     Dosage: 1.8 MG
     Route: 058
     Dates: start: 20171103, end: 20171103
  5. VELCADE [Suspect]
     Active Substance: BORTEZOMIB
     Dosage: DAY 8 OF CYCLE 2, DOSE: 2 MG, COMPOUNDED WITH SODIUM CHLORIDE, ON DAYS 1, 4, 8, 11, 22, 25, 29, 32
     Route: 058
     Dates: start: 20171110, end: 20171110
  6. VELCADE [Suspect]
     Active Substance: BORTEZOMIB
     Dosage: 2 MG/M2
     Route: 058
     Dates: start: 20171110, end: 20171114
  7. DUROGESIC DTRANS [Suspect]
     Active Substance: FENTANYL
     Dosage: 12 MCG
     Route: 065
     Dates: start: 20171108
  8. PREDNISONE. [Suspect]
     Active Substance: PREDNISONE
     Dosage: 70 MG, QD ((1 CYCLE)
     Route: 065
     Dates: start: 20171103, end: 20171103
  9. PREDNISONE. [Suspect]
     Active Substance: PREDNISONE
     Dosage: 1 CYCLICAL
     Route: 065
  10. OMEPRAZOLE. [Suspect]
     Active Substance: OMEPRAZOLE
     Indication: PRODUCT USED FOR UNKNOWN INDICATION
     Dosage: 20 MG, QD (EVERY MORNING)
     Route: 048
  11. VELCADE [Suspect]
     Active Substance: BORTEZOMIB
     Dosage: UNK1.8 MG/M2 Q CYCLE / 1.3 MG/M2 DAILY / 1.8 MG/M2 UNK / DOSE TEXT, 1.3 MG/M2, 1 CYCLE / 1.8 MG/M
     Route: 065
  12. PREDNISONE. [Suspect]
     Active Substance: PREDNISONE
     Indication: PLASMA CELL LEUKAEMIA
     Dosage: 70 MG, QD
     Route: 065
     Dates: start: 20171103, end: 20171106
  13. PREDNISONE. [Suspect]
     Active Substance: PREDNISONE
     Dosage: 70 MG, QD (1 CYCLE)
     Route: 065
  14. FENTANYL. [Suspect]
     Active Substance: FENTANYL
     Indication: PRODUCT USED FOR UNKNOWN INDICATION
     Dosage: 12 MCG HQ
     Route: 062
     Dates: start: 20171108
  15. SERTRALINE [Suspect]
     Active Substance: SERTRALINE HYDROCHLORIDE
     Indication: PRODUCT USED FOR UNKNOWN INDICATION
     Dosage: 50 MG, QD EVERY MORNING
     Route: 065
  16. BENDROFLUMETHIAZIDE [Suspect]
     Active Substance: BENDROFLUMETHIAZIDE
     Indication: PLASMA CELL LEUKAEMIA
     Dosage: 3 MG
     Route: 065
  17. BENDROFLUMETHIAZIDE [Suspect]
     Active Substance: BENDROFLUMETHIAZIDE
     Dosage: 2 MG, QD
     Route: 065
     Dates: start: 20171103, end: 20171103
  18. BENDROFLUMETHIAZIDE [Suspect]
     Active Substance: BENDROFLUMETHIAZIDE
     Dosage: 1.3 MG/M2 (EVERY CYCLE)
     Route: 058
     Dates: start: 20171106, end: 20171106
  19. ALLOPURINOL. [Suspect]
     Active Substance: ALLOPURINOL
     Dosage: 120 MG
     Dates: start: 20171120
  20. SODIUM CHLORIDE FRESENIUS KABI [Suspect]
     Active Substance: SODIUM CHLORIDE
     Dosage: UNK
     Route: 041
     Dates: start: 20171107, end: 201711
  21. VELCADE [Suspect]
     Active Substance: BORTEZOMIB
     Dosage: 1.8 MG
     Route: 058
     Dates: start: 20171107, end: 201711
  22. VELCADE [Suspect]
     Active Substance: BORTEZOMIB
     Dosage: 1.8 MG
     Route: 058
     Dates: start: 20171107, end: 201711
  23. DUROGESIC DTRANS [Suspect]
     Active Substance: FENTANYL
     Dosage: 12 MG, QH
     Route: 065
     Dates: start: 20171108
  24. BENDROFLUMETHIAZIDE [Suspect]
     Active Substance: BENDROFLUMETHIAZIDE
     Indication: PRODUCT USED FOR UNKNOWN INDICATION
     Dosage: 2.5 MG, QD EVERY MORNING
     Route: 065
  25. BENDROFLUMETHIAZIDE [Suspect]
     Active Substance: BENDROFLUMETHIAZIDE
     Dosage: 10 MG, QD
     Route: 065
  26. BENDROFLUMETHIAZIDE [Suspect]
     Active Substance: BENDROFLUMETHIAZIDE
     Dosage: 1.8 MG
     Route: 058
     Dates: start: 20171107, end: 201711
  27. BENDROFLUMETHIAZIDE [Suspect]
     Active Substance: BENDROFLUMETHIAZIDE
     Dosage: 1.8 MG
     Route: 058
     Dates: start: 20171110, end: 20171114
  28. FENTANYL. [Suspect]
     Active Substance: FENTANYL
     Indication: PRODUCT USED FOR UNKNOWN INDICATION
     Dosage: 12 UG (12 UG/INHAL, UNK)
     Route: 055
     Dates: start: 20171108
  29. FENTANYL. [Suspect]
     Active Substance: FENTANYL
     Dosage: 12 UG (12 UG/INHAL, UNK)
     Route: 055
  30. MELPHALAN. [Suspect]
     Active Substance: MELPHALAN
     Dosage: 14 MG, QD (1 CYCLE)
     Route: 065
     Dates: start: 20171107, end: 20171110
  31. SODIUM CHLORIDE FRESENIUS KABI [Suspect]
     Active Substance: SODIUM CHLORIDE
     Dosage: UNK
     Route: 041
     Dates: start: 20171110, end: 20171114
  32. VELCADE [Suspect]
     Active Substance: BORTEZOMIB
     Dosage: CYCLE 1, ON DAYS 1, 4, 8, 11, 22, 25, 29 AND 32
     Route: 058
  33. VELCADE [Suspect]
     Active Substance: BORTEZOMIB
     Dosage: 2 MG/M2
     Route: 058
     Dates: start: 20171103, end: 20171103
  34. DUROGESIC DTRANS [Suspect]
     Active Substance: FENTANYL
     Indication: PRODUCT USED FOR UNKNOWN INDICATION
     Dosage: UNK
     Route: 062
     Dates: start: 20171108
  35. DUROGESIC DTRANS [Suspect]
     Active Substance: FENTANYL
     Dosage: 12 MCG (FROM 08 NOV 2017)
     Route: 055
  36. PREDNISONE. [Suspect]
     Active Substance: PREDNISONE
     Dosage: UNK (1 CYCLE)
     Route: 065
     Dates: start: 20171106, end: 20171106
  37. BENDROFLUMETHIAZIDE [Suspect]
     Active Substance: BENDROFLUMETHIAZIDE
     Dosage: 2 MG, QD
     Route: 065
     Dates: start: 20171107, end: 201711
  38. BENDROFLUMETHIAZIDE [Suspect]
     Active Substance: BENDROFLUMETHIAZIDE
     Dosage: 2 MG, QD
     Route: 065
     Dates: start: 20171110, end: 20171114
  39. METOCLOPRAMIDE. [Suspect]
     Active Substance: METOCLOPRAMIDE
     Indication: PRODUCT USED FOR UNKNOWN INDICATION
     Dosage: 10 MG, PRN
     Route: 065
  40. MELPHALAN. [Suspect]
     Active Substance: MELPHALAN
     Indication: PLASMA CELL LEUKAEMIA
     Dosage: 14 MG, QD
     Route: 065
     Dates: start: 20171103, end: 20171106
  41. MELPHALAN. [Suspect]
     Active Substance: MELPHALAN
     Dosage: 10 MG, PRN, AS NECESSARY
     Route: 065
  42. ALLOPURINOL. [Suspect]
     Active Substance: ALLOPURINOL
     Dosage: 30 MG, QD
     Route: 065
     Dates: start: 20171104, end: 20171120
  43. ALLOPURINOL. [Suspect]
     Active Substance: ALLOPURINOL
     Dosage: 300 MG
     Route: 065
  44. ALLOPURINOL. [Suspect]
     Active Substance: ALLOPURINOL
     Dosage: 30 MG, QD
     Route: 065
     Dates: start: 20171104
  45. DEXAMETHASONE. [Suspect]
     Active Substance: DEXAMETHASONE
     Indication: PLASMA CELL LEUKAEMIA
     Dosage: 20 MG, QD
     Route: 065
     Dates: start: 20171102, end: 20171106
  46. SODIUM CHLORIDE FRESENIUS KABI [Suspect]
     Active Substance: SODIUM CHLORIDE
     Dosage: 1 UNK (CYCLICAL) 0.9 PERCENT ; SOLUTION FOR INFUSION DAY 1 OF CYCLE 2, VMP REGIMEN, COMPOUNDED WITH
     Route: 041
     Dates: start: 20171110, end: 20171110
  47. SODIUM CHLORIDE FRESENIUS KABI [Suspect]
     Active Substance: SODIUM CHLORIDE
     Dosage: 1 UNK (CYCLICAL) PER 9 PERCENT, SOLUTION FOR INFUSION DAY 1 OF CYCLE 2, VMP REGIMEN, COMPOUNDED WITH
     Route: 065
     Dates: start: 20171103, end: 20171103
  48. VELCADE [Suspect]
     Active Substance: BORTEZOMIB
     Dosage: 2 MG
     Route: 058
     Dates: start: 20171110, end: 20171110
  49. VELCADE [Suspect]
     Active Substance: BORTEZOMIB
     Dosage: 1.8 MG/M2
     Route: 058
     Dates: start: 20171110, end: 20171114
  50. OMEPRAZOLE. [Suspect]
     Active Substance: OMEPRAZOLE
     Dosage: 20 MILLIGRAM, ONCE A DAY, UNSPECIFIED, EVERY MORNING
     Route: 065
  51. MELPHALAN. [Suspect]
     Active Substance: MELPHALAN
     Dosage: 14 MG, TID
     Route: 065
     Dates: start: 20171103, end: 20171106
  52. VELCADE [Suspect]
     Active Substance: BORTEZOMIB
     Indication: PLASMA CELL LEUKAEMIA
     Dosage: 2 MG
     Route: 058
     Dates: start: 20171106, end: 20171106
  53. DUROGESIC DTRANS [Suspect]
     Active Substance: FENTANYL
     Dosage: UNK, Q1HR (FROM 08 NOV 2017)
     Route: 062
  54. PREDNISONE. [Suspect]
     Active Substance: PREDNISONE
     Dosage: UNK (1 CYCLE)
     Route: 065
  55. BENDROFLUMETHIAZIDE [Suspect]
     Active Substance: BENDROFLUMETHIAZIDE
     Dosage: 1.8 MG
     Route: 058
     Dates: start: 20171103, end: 20171103
  56. MELPHALAN. [Suspect]
     Active Substance: MELPHALAN
     Dosage: 1 UNK (CYCLICAL)
     Route: 065
  57. MELPHALAN. [Suspect]
     Active Substance: MELPHALAN
     Dosage: 14 MG, QD
     Route: 065
     Dates: start: 20171103, end: 20171103
  58. ALLOPURINOL. [Suspect]
     Active Substance: ALLOPURINOL
     Dosage: 300 MG
     Route: 065
     Dates: start: 20171104, end: 20171120
  59. ALLOPURINOL. [Suspect]
     Active Substance: ALLOPURINOL
     Dosage: 30 MG, QD
     Route: 065
  60. DEXAMETHASONE. [Suspect]
     Active Substance: DEXAMETHASONE
     Dosage: 100 UNK
     Route: 065
  61. SODIUM CHLORIDE FRESENIUS KABI [Suspect]
     Active Substance: SODIUM CHLORIDE
     Indication: MEDICATION DILUTION
     Dosage: UNK
     Route: 042
     Dates: start: 20171103, end: 20171106
  62. SODIUM CHLORIDE FRESENIUS KABI [Suspect]
     Active Substance: SODIUM CHLORIDE
     Dosage: 0.9 PERCENT, SOLUTION FOR INFUSION DAY 1 OF CYCLE 2, VMP REGIMEN, COMPOUNDED WITH BORTEZOMIB
     Route: 065
     Dates: start: 20171110, end: 20171110
  63. VELCADE [Suspect]
     Active Substance: BORTEZOMIB
     Dosage: DAY 4 OF CYCLE 2, DOSE AS 2 MG, COMPOUNDED WITH SODIUM CHLORIDE, ON DAYS 1, 4, 8, 11, 22, 25, 29, 32
     Route: 058
     Dates: start: 20171106, end: 20171106
  64. FENTANYL. [Suspect]
     Active Substance: FENTANYL
     Dosage: 12 MG EVERY 1HR
     Route: 062
     Dates: start: 20171108
  65. MELPHALAN. [Suspect]
     Active Substance: MELPHALAN
     Dosage: VMP REGIMEN, DAY 1 TO 4, CYCLE 2
     Route: 065
     Dates: start: 20171103, end: 20171106
  66. ALLOPURINOL. [Suspect]
     Active Substance: ALLOPURINOL
     Indication: PRODUCT USED FOR UNKNOWN INDICATION
     Dosage: 300 MG
     Route: 065
     Dates: start: 20171120
  67. VELCADE [Suspect]
     Active Substance: BORTEZOMIB
     Dosage: ON DAYS 1, 4, 8, 11, 22, 25, 29, 32, DAY 1 OF CYCLE 2; DOSE: 2 MG, COMPOUNDED WITH SODIUM CHLORIDE
     Route: 058
     Dates: start: 20171103, end: 20171103
  68. VELCADE [Suspect]
     Active Substance: BORTEZOMIB
     Dosage: 1.3 MG/M2, 1 CYCLE POWDER)
     Route: 058
  69. VELCADE [Suspect]
     Active Substance: BORTEZOMIB
     Dosage: 1 MG/M2
     Route: 058
     Dates: start: 20171106, end: 20171106
  70. PREDNISOLONE. [Suspect]
     Active Substance: PREDNISOLONE
     Indication: PLASMA CELL LEUKAEMIA
     Dosage: 1 UNK CYCLICAL
     Route: 065
  71. PREDNISOLONE. [Suspect]
     Active Substance: PREDNISOLONE
     Dosage: 70 MG, QD
     Route: 065
     Dates: start: 20171103, end: 20171106
  72. PREDNISONE. [Suspect]
     Active Substance: PREDNISONE
     Dosage: 70 MG, QD (1 CYCLE)
     Route: 065
     Dates: start: 20171106, end: 20171106
  73. PREDNISONE. [Suspect]
     Active Substance: PREDNISONE
     Dosage: 70 MG
     Route: 065
  74. SERTRALINE [Suspect]
     Active Substance: SERTRALINE HYDROCHLORIDE
     Dosage: UNK, INJECTION
     Route: 041
     Dates: start: 20171103, end: 20171106
  75. BENDROFLUMETHIAZIDE [Suspect]
     Active Substance: BENDROFLUMETHIAZIDE
     Dosage: UNK (1.8 MG/M2 Q_CYCLE / 1.3 MG/M2 )
     Route: 065
  76. BENDROFLUMETHIAZIDE [Suspect]
     Active Substance: BENDROFLUMETHIAZIDE
     Dosage: 1.3 MG/M2 (EVERY CYCLE)
     Route: 058
     Dates: start: 20171110, end: 20171110
  77. RAMIPRIL. [Suspect]
     Active Substance: RAMIPRIL
     Indication: PRODUCT USED FOR UNKNOWN INDICATION
     Dosage: 10 MG, QD EVERY MORNING
     Route: 065

REACTIONS (13)
  - Agitation [Recovered/Resolved]
  - Paranoia [Recovered/Resolved]
  - Disorientation [Recovered/Resolved]
  - Disturbance in social behaviour [Recovered/Resolved]
  - Abnormal behaviour [Recovered/Resolved]
  - Confusional state [Recovered/Resolved]
  - Off label use [Unknown]
  - Intentional product misuse [Unknown]
  - Emotional distress [Not Recovered/Not Resolved]
  - Drug abuse [Unknown]
  - Medication error [Unknown]
  - Product use in unapproved indication [Unknown]
  - Hallucination [Recovered/Resolved]

NARRATIVE: CASE EVENT DATE: 20171107
